FAERS Safety Report 9209398 (Version 1)
Quarter: 2013Q2

REPORT INFORMATION
  Report Type: Spontaneous
  Country: MX (occurrence: MX)
  Receive Date: 20130404
  Receipt Date: 20130404
  Transmission Date: 20140414
  Serious: Yes (Life-Threatening, Other)
  Sender: FDA-Public Use
  Company Number: MX-SANOFI-AVENTIS-2013SA032733

PATIENT
  Age: 67 Year
  Sex: Male
  Weight: 70 kg

DRUGS (8)
  1. LANTUS [Suspect]
     Indication: TYPE 2 DIABETES MELLITUS
     Route: 058
     Dates: start: 1998, end: 20130222
  2. LANTUS [Suspect]
     Indication: TYPE 2 DIABETES MELLITUS
     Route: 058
     Dates: start: 20130308
  3. SHORANT [Suspect]
     Indication: TYPE 2 DIABETES MELLITUS
     Route: 058
     Dates: start: 1998, end: 20130308
  4. BONGLIXAN [Suspect]
     Indication: TYPE 2 DIABETES MELLITUS
     Route: 058
     Dates: start: 20130308
  5. VALPROATE MAGNESIUM [Concomitant]
     Indication: BIPOLAR DISORDER
     Route: 048
     Dates: start: 2007
  6. VALPROATE MAGNESIUM [Concomitant]
     Indication: DEPRESSION
     Route: 048
     Dates: start: 2007
  7. OLANZAPINE [Concomitant]
     Indication: BIPOLAR DISORDER
     Route: 048
     Dates: start: 2007
  8. OLANZAPINE [Concomitant]
     Indication: DEPRESSION
     Route: 048
     Dates: start: 2007

REACTIONS (7)
  - Bipolar disorder [Unknown]
  - Hypoglycaemia [Recovered/Resolved]
  - Increased appetite [Recovered/Resolved]
  - Hyperhidrosis [Recovered/Resolved]
  - Depression [Recovered/Resolved]
  - Grand mal convulsion [Recovered/Resolved]
  - Weight decreased [Unknown]
